FAERS Safety Report 23972825 (Version 1)
Quarter: 2024Q2

REPORT INFORMATION
  Report Type: Spontaneous
  Country: US (occurrence: US)
  Receive Date: 20240613
  Receipt Date: 20240613
  Transmission Date: 20240716
  Serious: No
  Sender: FDA-Public Use
  Company Number: US-BAUSCH-BL-2024-009059

PATIENT
  Age: 59 Year
  Sex: Female

DRUGS (2)
  1. TRETINOIN [Suspect]
     Active Substance: TRETINOIN
     Indication: Skin hyperpigmentation
     Dosage: 1 GRAM APPLIED TOPICALLY TO THE FACE, 2X/DAY (MORNING AND EVENING)
     Route: 061
     Dates: start: 20240227, end: 202403
  2. TRETINOIN [Suspect]
     Active Substance: TRETINOIN
     Indication: Product use in unapproved indication
     Dosage: 1 GRAM APPLIED TOPICALLY TO THE FACE, 2X/DAY (MORNING AND EVENING)
     Route: 061
     Dates: start: 20240311, end: 202403

REACTIONS (5)
  - Application site rash [Unknown]
  - Application site pruritus [Unknown]
  - Application site erythema [Unknown]
  - Application site oedema [Unknown]
  - Product use in unapproved indication [Unknown]

NARRATIVE: CASE EVENT DATE: 20240227
